FAERS Safety Report 11597928 (Version 1)
Quarter: 2015Q4

REPORT INFORMATION
  Report Type: Spontaneous
  Country: US (occurrence: US)
  Receive Date: 20151006
  Receipt Date: 20151006
  Transmission Date: 20160304
  Serious: No
  Sender: FDA-Public Use
  Company Number: US-ROCHE-1517813

PATIENT
  Sex: Male

DRUGS (8)
  1. TAMSULOSIN [Concomitant]
     Active Substance: TAMSULOSIN
  2. NITROSTAT [Concomitant]
     Active Substance: NITROGLYCERIN
  3. LEVOTHYROXINE. [Concomitant]
     Active Substance: LEVOTHYROXINE
  4. ERIVEDGE [Suspect]
     Active Substance: VISMODEGIB
     Indication: MALIGNANT MELANOMA
     Route: 048
     Dates: start: 20131018
  5. TYLENOL [Concomitant]
     Active Substance: ACETAMINOPHEN
  6. LIDOCAINE. [Concomitant]
     Active Substance: LIDOCAINE
  7. NYSTATIN/TRIAMCINOLONE [Concomitant]
     Active Substance: NYSTATIN\TRIAMCINOLONE
  8. CLOPIDOGREL [Concomitant]
     Active Substance: CLOPIDOGREL BISULFATE

REACTIONS (2)
  - Constipation [Not Recovered/Not Resolved]
  - Alopecia [Not Recovered/Not Resolved]
